FAERS Safety Report 7465194-2 (Version None)
Quarter: 2011Q2

REPORT INFORMATION
  Report Type: 
  Country: None (occurrence: None)
  Receive Date: 20110509
  Receipt Date: 20110425
  Transmission Date: 20111010
  Serious: Yes (Hospitalization)
  Sender: FDA-Public Use
  Company Number: PHHY2011CA35454

PATIENT
  Sex: Male

DRUGS (3)
  1. SULPIRIDE [Concomitant]
     Dosage: 300 MG, DAILY
  2. CLOZARIL [Suspect]
     Indication: SCHIZOAFFECTIVE DISORDER
     Dosage: 1100 MG
     Dates: start: 20000906, end: 20110407
  3. HALDOL [Concomitant]
     Dosage: 20-40 MG PER DAY
     Route: 048

REACTIONS (8)
  - ASPIRATION [None]
  - VOLVULUS [None]
  - ABDOMINAL PAIN [None]
  - VOMITING [None]
  - NAUSEA [None]
  - PNEUMONIA ASPIRATION [None]
  - INTESTINAL OBSTRUCTION [None]
  - DIARRHOEA [None]
